FAERS Safety Report 22079332 (Version 1)
Quarter: 2023Q1

REPORT INFORMATION
  Report Type: Spontaneous
  Country: US (occurrence: None)
  Receive Date: 20230309
  Receipt Date: 20230309
  Transmission Date: 20230418
  Serious: No
  Sender: FDA-Public Use
  Company Number: None

PATIENT
  Age: 57 Year
  Sex: Female
  Weight: 74.25 kg

DRUGS (1)
  1. REPATHA [Suspect]
     Active Substance: EVOLOCUMAB
     Indication: Blood cholesterol increased
     Dosage: OTHER QUANTITY : 1 INJECTION(S);?OTHER FREQUENCY : EVERY TWO WEEKS;?
     Route: 058

REACTIONS (5)
  - Arthralgia [None]
  - Arthralgia [None]
  - Taste disorder [None]
  - Urine odour abnormal [None]
  - Abnormal faeces [None]

NARRATIVE: CASE EVENT DATE: 20220801
